FAERS Safety Report 10409853 (Version 1)
Quarter: 2014Q3

REPORT INFORMATION
  Report Type: Spontaneous
  Country: US (occurrence: US)
  Receive Date: 20140826
  Receipt Date: 20140826
  Transmission Date: 20150326
  Serious: No
  Sender: FDA-Public Use
  Company Number: US-VIVUS-2014V1000297

PATIENT
  Age: 58 Year
  Sex: Male
  Weight: 80.81 kg

DRUGS (1)
  1. STENDRA [Suspect]
     Active Substance: AVANAFIL
     Indication: ERECTILE DYSFUNCTION
     Route: 048
     Dates: start: 20140508

REACTIONS (1)
  - Drug ineffective [Not Recovered/Not Resolved]

NARRATIVE: CASE EVENT DATE: 20140511
